FAERS Safety Report 9143294 (Version 1)
Quarter: 2013Q1

REPORT INFORMATION
  Report Type: Spontaneous
  Country: US (occurrence: US)
  Receive Date: 20130306
  Receipt Date: 20130306
  Transmission Date: 20140127
  Serious: No
  Sender: FDA-Public Use
  Company Number: US-ENDO PHARMACEUTICALS INC.-OPER20120034

PATIENT
  Age: 49 Year
  Sex: Female
  Weight: 63.56 kg

DRUGS (2)
  1. OPANA ER 20MG [Suspect]
     Route: 048
     Dates: start: 2009
  2. PERCOCET [Concomitant]
     Indication: PAIN
     Route: 065
     Dates: start: 2009

REACTIONS (1)
  - Drug screen positive [Unknown]
